FAERS Safety Report 6178536-5 (Version None)
Quarter: 2009Q2

REPORT INFORMATION
  Report Type: 
  Country: None (occurrence: None)
  Receive Date: 20090504
  Receipt Date: 20080721
  Transmission Date: 20091009
  Serious: No
  Sender: FDA-Public Use
  Company Number: US-ALEXION-A200700005

PATIENT

DRUGS (23)
  1. SOLIRIS [Suspect]
     Indication: PAROXYSMAL NOCTURNAL HAEMOGLOBINURIA
     Dosage: 600 MG, SINGLE
     Route: 042
     Dates: start: 20070419, end: 20070419
  2. SOLIRIS [Suspect]
     Dosage: 600 MG, SINGLE
     Route: 042
     Dates: start: 20070426, end: 20070426
  3. SOLIRIS [Suspect]
     Dosage: 600 MG, SINGLE
     Route: 042
     Dates: start: 20070503, end: 20070503
  4. SOLIRIS [Suspect]
     Dates: start: 20070531, end: 20070531
  5. SOLIRIS [Suspect]
     Dosage: 900 MG, SINGLE
     Route: 042
     Dates: start: 20080207, end: 20080207
  6. SOLIRIS [Suspect]
     Dosage: 900 MG, SINGLE
     Route: 042
     Dates: start: 20080221, end: 20080221
  7. SOLIRIS [Suspect]
     Dosage: 900 MG, SINGLE
     Route: 042
     Dates: start: 20080306, end: 20080306
  8. SOLIRIS [Suspect]
     Dosage: 900 MG, SINGLE
     Route: 042
     Dates: start: 20080320, end: 20080320
  9. SOLIRIS [Suspect]
     Dosage: 900 MG, SINGLE
     Route: 042
     Dates: start: 20080403, end: 20080403
  10. SOLIRIS [Suspect]
     Dosage: 900 MG, SINGLE
     Route: 042
     Dates: start: 20080417, end: 20080417
  11. SOLIRIS [Suspect]
     Dosage: 900 MG, SINGLE
     Route: 042
     Dates: start: 20080501, end: 20080501
  12. SOLIRIS [Suspect]
     Dosage: 900 MG, SINGLE
     Route: 042
     Dates: start: 20080515, end: 20080515
  13. SOLIRIS [Suspect]
     Dosage: 900 MG, SINGLE
     Route: 042
     Dates: start: 20080529, end: 20080529
  14. SOLIRIS [Suspect]
     Dosage: 900 MG, SINGLE
     Route: 042
     Dates: start: 20080612, end: 20080612
  15. SOLIRIS [Suspect]
     Dosage: 900 MG, SINGLE
     Route: 042
     Dates: start: 20080626, end: 20080626
  16. SOLIRIS [Suspect]
     Dosage: 900 MG, SINGLE
     Route: 042
     Dates: start: 20080710, end: 20080710
  17. FOLIC ACID [Concomitant]
     Dosage: 5 MG, QD
     Route: 048
     Dates: start: 20040101
  18. CLARITIN [Concomitant]
     Indication: SEASONAL ALLERGY
     Dosage: 10 MG, PRN, QD
  19. LEXAPRO [Concomitant]
     Dosage: 20 MG, QD
     Route: 048
     Dates: start: 20010101
  20. IRON [Concomitant]
     Dosage: 65 MG, M W-F
     Route: 048
  21. LOW-OGESTREL-21 [Concomitant]
     Indication: CONTRACEPTION
     Dosage: UNK, QD
     Route: 048
     Dates: start: 20030101
  22. VITAMIN B COMPLEX /00003501/ [Concomitant]
     Dosage: UNK, QD
     Route: 048
  23. VITAMIN C /00008001/ [Concomitant]
     Dosage: UNK, QD
     Route: 048

REACTIONS (7)
  - BLOOD LACTATE DEHYDROGENASE INCREASED [None]
  - CHEST PAIN [None]
  - CONTUSION [None]
  - FATIGUE [None]
  - FEELING HOT [None]
  - HAEMOGLOBIN DECREASED [None]
  - HEADACHE [None]
